FAERS Safety Report 25019950 (Version 1)
Quarter: 2025Q1

REPORT INFORMATION
  Report Type: Report from Study
  Country: US (occurrence: US)
  Receive Date: 20250227
  Receipt Date: 20250227
  Transmission Date: 20250409
  Serious: Yes (Hospitalization)
  Sender: GILEAD
  Company Number: US-GILEAD-2025-0705050

PATIENT
  Age: 49 Year
  Sex: Female

DRUGS (15)
  1. AZTREONAM LYSINE [Suspect]
     Active Substance: AZTREONAM LYSINE
     Indication: Pseudomonas infection
     Dosage: INHALE THE CONTENTS OF 1 VIAL (75 MG) VIA ALTERA NEBULIZER THREE TIMES DAILY FOR 14 DAYS ON AND 14 D
     Route: 055
  2. ASCORBIC ACID [Concomitant]
     Active Substance: ASCORBIC ACID
  3. PANTOPRAZOLE SODIUM [Concomitant]
     Active Substance: PANTOPRAZOLE SODIUM
  4. MOMETASONE FUROATE [Concomitant]
     Active Substance: MOMETASONE FUROATE
  5. PERTZYE [Concomitant]
     Active Substance: PANCRELIPASE AMYLASE\PANCRELIPASE LIPASE\PANCRELIPASE PROTEASE
  6. FLOVENT [Concomitant]
     Active Substance: FLUTICASONE PROPIONATE
  7. TRIKAFTA [Concomitant]
     Active Substance: ELEXACAFTOR\IVACAFTOR\TEZACAFTOR
  8. AZITHROMYCIN [Concomitant]
     Active Substance: AZITHROMYCIN
  9. ATROVENT [Concomitant]
     Active Substance: IPRATROPIUM BROMIDE
  10. PHYTONADIONE [Concomitant]
     Active Substance: PHYTONADIONE
  11. SINGULAIR [Concomitant]
     Active Substance: MONTELUKAST SODIUM
  12. SPIRIVA [Concomitant]
     Active Substance: TIOTROPIUM BROMIDE MONOHYDRATE
  13. POLYETHYLENE GLYCOL [Concomitant]
     Active Substance: POLYETHYLENE GLYCOL
  14. FAMOTIDINE [Concomitant]
     Active Substance: FAMOTIDINE
  15. TAZAROTENE [Concomitant]
     Active Substance: TAZAROTENE

REACTIONS (3)
  - Influenza [Unknown]
  - Product use in unapproved indication [Unknown]
  - Product use issue [Unknown]

NARRATIVE: CASE EVENT DATE: 20250127
